FAERS Safety Report 8701922 (Version 4)
Quarter: 2012Q4

REPORT INFORMATION
  Report Type: 
  Country: AE (occurrence: AE)
  Receive Date: 20120803
  Receipt Date: 20120909
  Transmission Date: 20130627
  Serious: Yes (Other)
  Sender: FDA-Public Use
  Company Number: AE-ABBOTT-12P-093-0962851-00

PATIENT
  Age: 23 Year
  Sex: Female

DRUGS (1)
  1. HUMIRA 40 MG/ 0.8 ML PRE-FILLED SYRINGE [Suspect]
     Indication: CROHN^S DISEASE
     Route: 058

REACTIONS (2)
  - Endometriosis [Unknown]
  - Abdominal pain [Unknown]
